FAERS Safety Report 15598907 (Version 5)
Quarter: 2020Q2

REPORT INFORMATION
  Report Type: Spontaneous
  Country: GR (occurrence: GR)
  Receive Date: 20181108
  Receipt Date: 20200603
  Transmission Date: 20200713
  Serious: Yes (Hospitalization, Other)
  Sender: FDA-Public Use
  Company Number: GR-PFIZER INC-2018446554

PATIENT
  Age: 82 Year
  Sex: Female

DRUGS (5)
  1. DOXORUBICIN HCL [Suspect]
     Active Substance: DOXORUBICIN HYDROCHLORIDE
     Indication: NON-HODGKIN^S LYMPHOMA STAGE II
     Dosage: 50 MG/M2, CYCLIC (ADMINISTERED EVERY 21 DAYS, COMPLETED 8 CYCLES)
  2. VINCRISTINE SULFATE. [Suspect]
     Active Substance: VINCRISTINE SULFATE
     Indication: NON-HODGKIN^S LYMPHOMA STAGE II
     Dosage: 1.4 MG/M2, CYCLIC (ADMINISTERED EVERY 21 DAYS, COMPLETED 8 CYCLES)
  3. RITUXIMAB. [Suspect]
     Active Substance: RITUXIMAB
     Indication: NON-HODGKIN^S LYMPHOMA STAGE II
     Dosage: 375 MG/M2, CYCLIC (ON DAY 1, ADMINISTERED EVERY 21 DAYS, COMPLETED 8 CYCLES)
     Route: 042
  4. PREDNISOLONE. [Suspect]
     Active Substance: PREDNISOLONE
     Indication: NON-HODGKIN^S LYMPHOMA STAGE II
     Dosage: 40 MG/M2, CYCLIC (ON DAYS 1-5, ADMINISTERED EVERY 21 DAYS, COMPLETED 8 CYCLES)
     Route: 048
  5. CYCLOPHOSPHAMIDE. [Suspect]
     Active Substance: CYCLOPHOSPHAMIDE
     Indication: NON-HODGKIN^S LYMPHOMA STAGE II
     Dosage: 750 MG/M2, CYCLIC (ADMINISTERED EVERY 21 DAYS, COMPLETED 8 CYCLES)

REACTIONS (1)
  - Pneumatosis intestinalis [Recovered/Resolved]
